FAERS Safety Report 8852872 (Version 1)
Quarter: 2012Q4

REPORT INFORMATION
  Report Type: 
  Country: CA (occurrence: CA)
  Receive Date: 20121022
  Receipt Date: 20121022
  Transmission Date: 20130627
  Serious: Yes (Other)
  Sender: FDA-Public Use
  Company Number: PHHY2005CA007767

PATIENT
  Sex: Female

DRUGS (3)
  1. SANDOSTATIN LAR [Suspect]
     Indication: CARCINOID TUMOUR
     Dosage: UNK mg, every 4 weeks
     Dates: start: 20051006
  2. ASA [Concomitant]
  3. THYROXINE [Concomitant]

REACTIONS (4)
  - Blood pressure systolic increased [Unknown]
  - Osteoarthritis [Unknown]
  - Diarrhoea [Unknown]
  - Bradycardia [Unknown]
